FAERS Safety Report 9692554 (Version 1)
Quarter: 2013Q4

REPORT INFORMATION
  Report Type: Spontaneous
  Country: US (occurrence: US)
  Receive Date: 20131118
  Receipt Date: 20131118
  Transmission Date: 20140711
  Serious: Yes (Hospitalization)
  Sender: FDA-Public Use
  Company Number: US-BAYER-2013-138894

PATIENT
  Age: 32 Year
  Sex: Female

DRUGS (17)
  1. YAZ [Suspect]
     Indication: CONTRACEPTION
  2. YAZ [Suspect]
     Indication: ACNE
  3. YASMIN [Suspect]
  4. SERTRALINE [Concomitant]
     Dosage: 50 MG 1
     Route: 048
  5. CYCLOBENZAPRINE [Concomitant]
     Indication: MUSCLE SPASMS
     Dosage: 10 MG, Q 6 HOURS
  6. OXYCONTIN [Concomitant]
     Indication: PAIN
     Dosage: 20 MG, BID
  7. OXYCODONE/APAP [Concomitant]
     Dosage: 5MG-325MG 1-2 Q 6 H
     Route: 048
  8. CLARAVIS [Concomitant]
     Dosage: 40 MG, BID
     Route: 048
  9. TRAMADOL [Concomitant]
     Indication: PAIN
     Dosage: 50 MG 1 OR 2 TABLETS EVERY 4 TO 6 HOURS IF NEEDED
     Route: 048
  10. ZOLOFT [Concomitant]
  11. ACCUTANE [Concomitant]
  12. ALLEGRA [Concomitant]
  13. WELLBUTRIN [Concomitant]
  14. KETOROLAC [Concomitant]
  15. DEPO-PROVERA [Concomitant]
  16. PERCOCET [Concomitant]
  17. ALBUTEROL [Concomitant]

REACTIONS (1)
  - Pulmonary embolism [None]
